FAERS Safety Report 7020868-2 (Version None)
Quarter: 2010Q3

REPORT INFORMATION
  Report Type: 
  Country: None (occurrence: None)
  Receive Date: 20100929
  Receipt Date: 20100919
  Transmission Date: 20110219
  Serious: Yes (Other)
  Sender: FDA-Public Use
  Company Number: CN-PFIZER INC-2010116197

PATIENT
  Sex: Female

DRUGS (1)
  1. XALATAN [Suspect]
     Indication: OPEN ANGLE GLAUCOMA
     Dosage: 1 DROP ONCE DAILY
     Route: 047

REACTIONS (3)
  - COMPLEX REGIONAL PAIN SYNDROME [None]
  - EYE DISORDER [None]
  - EYE OPERATION COMPLICATION [None]
